FAERS Safety Report 7399048-7 (Version None)
Quarter: 2011Q1

REPORT INFORMATION
  Report Type: 
  Country: None (occurrence: None)
  Receive Date: 20110328
  Receipt Date: 20110315
  Transmission Date: 20110831
  Serious: Yes (Hospitalization)
  Sender: FDA-Public Use
  Company Number: TRP_07614_2011

PATIENT
  Sex: Male
  Weight: 276 kg

DRUGS (8)
  1. INFERGEN [Suspect]
     Indication: HEPATITIS C
     Dosage: 15UG, QD, SUBCUTANEOUS
     Route: 058
     Dates: start: 20100206, end: 20110106
  2. LEXAPRO [Concomitant]
  3. RIBAPAK (1600 MG, 1200 MG) (NOT SPECIFIED) [Suspect]
     Indication: HEPATITIS C
     Dosage: 800 MG, BID, ORAL, 1200 MG, DAILY, ORAL
     Route: 048
     Dates: start: 20100802, end: 20110106
  4. RIBAPAK (1600 MG, 1200 MG) (NOT SPECIFIED) [Suspect]
     Indication: HEPATITIS C
     Dosage: 800 MG, BID, ORAL, 1200 MG, DAILY, ORAL
     Route: 048
     Dates: start: 20100206, end: 20100801
  5. ALLOPURINOL [Concomitant]
  6. FUROSEMIDE [Concomitant]
  7. LISINOPRIL [Concomitant]
  8. SPIRONOLACTONE [Concomitant]

REACTIONS (3)
  - HYPONATRAEMIA [None]
  - MENTAL STATUS CHANGES [None]
  - CONFUSIONAL STATE [None]
